FAERS Safety Report 18302025 (Version 1)
Quarter: 2020Q3

REPORT INFORMATION
  Report Type: Spontaneous
  Country: US (occurrence: US)
  Receive Date: 20200923
  Receipt Date: 20200923
  Transmission Date: 20201103
  Serious: Yes (Other)
  Sender: FDA-Public Use
  Company Number: US-TEVA-2020-US-1831854

PATIENT
  Age: 35 Year
  Sex: Female
  Weight: 90 kg

DRUGS (14)
  1. SUMATRIPTAN INJECTION [Concomitant]
     Active Substance: SUMATRIPTAN
  2. PROMETHAZINE [Concomitant]
     Active Substance: PROMETHAZINE HYDROCHLORIDE
  3. MEDROL [Concomitant]
     Active Substance: METHYLPREDNISOLONE
  4. DECADRON [Concomitant]
     Active Substance: DEXAMETHASONE
  5. SPRIX [Concomitant]
     Active Substance: KETOROLAC TROMETHAMINE
     Dates: start: 202008
  6. AJOVY [Suspect]
     Active Substance: FREMANEZUMAB-VFRM
  7. NICOTINE PATCHES [Concomitant]
     Active Substance: NICOTINE
     Dates: start: 202009
  8. PHENERGAN [Concomitant]
     Active Substance: PROMETHAZINE HYDROCHLORIDE
  9. TORADOL [Concomitant]
     Active Substance: KETOROLAC TROMETHAMINE
  10. NICOTINE PATCHES [Concomitant]
     Active Substance: NICOTINE
     Dates: start: 202009
  11. BOTOX [Concomitant]
     Active Substance: ONABOTULINUMTOXINA
  12. RIZATRIPTAN. [Concomitant]
     Active Substance: RIZATRIPTAN
  13. HYDROXYZINE [Concomitant]
     Active Substance: HYDROXYZINE HYDROCHLORIDE
  14. AJOVY [Suspect]
     Active Substance: FREMANEZUMAB-VFRM
     Indication: MIGRAINE
     Dates: start: 20200604

REACTIONS (11)
  - Dyspnoea [Recovering/Resolving]
  - Liposuction [Unknown]
  - Sinusitis [Recovering/Resolving]
  - Secretion discharge [Recovering/Resolving]
  - Fatigue [Recovered/Resolved]
  - Oropharyngeal pain [Recovering/Resolving]
  - Illness [Recovering/Resolving]
  - Migraine [Unknown]
  - Cortisol decreased [Unknown]
  - Asthenia [Recovered/Resolved]
  - Somnolence [Unknown]

NARRATIVE: CASE EVENT DATE: 202007
